FAERS Safety Report 6673620-1 (Version None)
Quarter: 2010Q2

REPORT INFORMATION
  Report Type: 
  Country: None (occurrence: None)
  Receive Date: 20100408
  Receipt Date: 20100329
  Transmission Date: 20101027
  Serious: Yes (Life-Threatening, Hospitalization, Other)
  Sender: FDA-Public Use
  Company Number: FR-ABBOTT-10P-056-0635315-00

PATIENT
  Age: 28 Year
  Sex: Female

DRUGS (5)
  1. SEVORANE [Suspect]
     Indication: ANAESTHESIA
     Dosage: 1 DOSAGE FROM, ONCE
     Route: 050
     Dates: start: 20100309, end: 20100309
  2. PROPOFOL [Suspect]
     Indication: DRUG USE FOR UNKNOWN INDICATION
     Route: 042
     Dates: start: 20100309, end: 20100309
  3. MIDAZOLAM HCL [Suspect]
     Indication: DRUG USE FOR UNKNOWN INDICATION
     Route: 042
     Dates: start: 20100309, end: 20100309
  4. FENTANYL-100 [Suspect]
     Indication: DRUG USE FOR UNKNOWN INDICATION
     Route: 042
     Dates: start: 20100309, end: 20100309
  5. DOPRAM [Suspect]
     Indication: DRUG USE FOR UNKNOWN INDICATION
     Route: 042
     Dates: start: 20100309, end: 20100309

REACTIONS (5)
  - ATRIAL FIBRILLATION [None]
  - CARDIAC FAILURE [None]
  - CARDIO-RESPIRATORY ARREST [None]
  - EJECTION FRACTION DECREASED [None]
  - HYPOXIA [None]
